FAERS Safety Report 5659829-4 (Version None)
Quarter: 2008Q1

REPORT INFORMATION
  Report Type: 
  Country: None (occurrence: None)
  Receive Date: 20080311
  Receipt Date: 20080227
  Transmission Date: 20080703
  Serious: Yes (Death)
  Sender: FDA-Public Use
  Company Number: BE-TYCO HEALTHCARE/MALLINCKRODT-T200800367

PATIENT

DRUGS (2)
  1. TRAMADOL HCL [Suspect]
  2. BENZODIAZEPINE DERIVATIVES [Suspect]

REACTIONS (3)
  - ACUTE HEPATIC FAILURE [None]
  - POISONING [None]
  - RENAL FAILURE ACUTE [None]
